FAERS Safety Report 13690903 (Version 2)
Quarter: 2017Q3

REPORT INFORMATION
  Report Type: Spontaneous
  Country: US (occurrence: US)
  Receive Date: 20170626
  Receipt Date: 20170928
  Transmission Date: 20171127
  Serious: No
  Sender: FDA-Public Use
  Company Number: US-CLOVIS ONCOLOGY-CLO-2017-000534

PATIENT
  Sex: Female

DRUGS (3)
  1. RUBRACA [Suspect]
     Active Substance: RUCAPARIB CAMSYLATE
     Dosage: 500 MG, BID
     Route: 048
     Dates: start: 201706, end: 201708
  2. RUBRACA [Suspect]
     Active Substance: RUCAPARIB CAMSYLATE
     Indication: OVARIAN CANCER
     Dosage: 600 MG, BID
     Route: 048
     Dates: start: 201705, end: 201706
  3. RUBRACA [Suspect]
     Active Substance: RUCAPARIB CAMSYLATE
     Dosage: 400 MG AM/ 500 MG PM, BID
     Route: 048
     Dates: start: 201708

REACTIONS (12)
  - Oral pain [Unknown]
  - Blood creatinine increased [Unknown]
  - Decreased appetite [Unknown]
  - Liver function test increased [Unknown]
  - Bronchitis [Unknown]
  - Abdominal pain [Unknown]
  - Insomnia [Unknown]
  - Dysgeusia [Unknown]
  - Nausea [Unknown]
  - Blood cholesterol increased [Unknown]
  - Underdose [Unknown]
  - Fatigue [Unknown]

NARRATIVE: CASE EVENT DATE: 2017
